FAERS Safety Report 9407861 (Version 1)
Quarter: 2013Q3

REPORT INFORMATION
  Report Type: Spontaneous
  Country: US (occurrence: None)
  Receive Date: 20130717
  Receipt Date: 20130717
  Transmission Date: 20140515
  Serious: Yes (Hospitalization)
  Sender: FDA-Public Use
  Company Number: None

PATIENT
  Age: 86 Year
  Sex: Male
  Weight: 71.9 kg

DRUGS (2)
  1. ENOXAPARIN (GENERIC) [Suspect]
     Indication: ATRIAL FIBRILLATION
     Dosage: ML EVERY DAY.SQ
  2. ENOXAPARIN (GENERIC) [Suspect]
     Indication: DEEP VEIN THROMBOSIS
     Dosage: ML EVERY DAY.SQ

REACTIONS (1)
  - Pulmonary embolism [None]
